FAERS Safety Report 5679084-9 (Version None)
Quarter: 2008Q1

REPORT INFORMATION
  Report Type: 
  Country: None (occurrence: None)
  Receive Date: 20080325
  Receipt Date: 20080317
  Transmission Date: 20080703
  Serious: Yes (Other)
  Sender: FDA-Public Use
  Company Number: BR-AVENTIS-200812531GDDC

PATIENT
  Age: 24 Year
  Sex: Female
  Weight: 51 kg

DRUGS (2)
  1. ALLEGRA-D 12 HOUR [Suspect]
     Dosage: DOSE QUANTITY: 1
     Route: 048
     Dates: start: 20080310, end: 20080314
  2. ALLEGRA-D 12 HOUR [Suspect]
     Dosage: DOSE QUANTITY: 1
     Route: 048
     Dates: start: 20080310, end: 20080314

REACTIONS (2)
  - DRUG INEFFECTIVE [None]
  - PNEUMONIA [None]
